FAERS Safety Report 9982411 (Version 1)
Quarter: 2014Q1

REPORT INFORMATION
  Report Type: Report from Study
  Country: US (occurrence: US)
  Receive Date: 20140307
  Receipt Date: 20140307
  Transmission Date: 20141002
  Serious: No
  Sender: FDA-Public Use
  Company Number: US-ABBVIE-13P-163-1179617-00

PATIENT
  Age: 39 Year
  Sex: Female

DRUGS (14)
  1. HUMIRA [Suspect]
     Indication: CROHN^S DISEASE
     Dates: start: 20131110
  2. PRILOSEC [Concomitant]
     Indication: PRODUCT USED FOR UNKNOWN INDICATION
  3. NEURONTIN [Concomitant]
     Indication: PRODUCT USED FOR UNKNOWN INDICATION
  4. MERCAPTOPURINE [Concomitant]
     Indication: PRODUCT USED FOR UNKNOWN INDICATION
  5. ATIVAN [Concomitant]
     Indication: PRODUCT USED FOR UNKNOWN INDICATION
  6. SPIRONOLACTONE [Concomitant]
     Indication: PRODUCT USED FOR UNKNOWN INDICATION
  7. B12 [Concomitant]
     Indication: PRODUCT USED FOR UNKNOWN INDICATION
     Route: 050
  8. PHENERGAN [Concomitant]
     Indication: PRODUCT USED FOR UNKNOWN INDICATION
  9. K-LOR [Concomitant]
     Indication: PRODUCT USED FOR UNKNOWN INDICATION
  10. DRAMAMINE [Concomitant]
     Indication: PRODUCT USED FOR UNKNOWN INDICATION
  11. LISINOPRIL [Concomitant]
     Indication: BLOOD PRESSURE INCREASED
  12. LISINOPRIL [Concomitant]
     Indication: FLUID RETENTION
     Dates: start: 201311
  13. WELLBUTRIN [Concomitant]
     Indication: ANXIETY
  14. WELLBUTRIN [Concomitant]
     Indication: SMOKING CESSATION THERAPY
     Dates: start: 201311

REACTIONS (4)
  - Fluid retention [Unknown]
  - Acrochordon [Not Recovered/Not Resolved]
  - Anxiety [Recovering/Resolving]
  - Blood pressure increased [Unknown]
